FAERS Safety Report 14835970 (Version 5)
Quarter: 2018Q2

REPORT INFORMATION
  Report Type: Report from Study
  Country: None (occurrence: US)
  Receive Date: 20180502
  Receipt Date: 20180629
  Transmission Date: 20180711
  Serious: Yes (Other)
  Sender: FDA-Public Use
  Company Number: US-BAUSCH-BL-2018-012348

PATIENT
  Age: 26 Year
  Sex: Female
  Weight: 71.73 kg

DRUGS (1)
  1. SILIQ [Suspect]
     Active Substance: BRODALUMAB
     Indication: PSORIASIS
     Dosage: EVERY TWO WEEKS/1.5ML PRESERVATION FREE SOLUTION (PFS) X 2
     Route: 058
     Dates: start: 20171228, end: 20180301

REACTIONS (2)
  - Crying [Recovered/Resolved]
  - Suicidal ideation [Recovered/Resolved]

NARRATIVE: CASE EVENT DATE: 201712
